FAERS Safety Report 12615124 (Version 1)
Quarter: 2016Q3

REPORT INFORMATION
  Report Type: Spontaneous
  Country: US (occurrence: US)
  Receive Date: 20160802
  Receipt Date: 20160802
  Transmission Date: 20161109
  Serious: No
  Sender: FDA-Public Use
  Company Number: US-ELI_LILLY_AND_COMPANY-US201607009439

PATIENT
  Sex: Female

DRUGS (4)
  1. DIFLUCAN [Concomitant]
     Active Substance: FLUCONAZOLE
  2. TRULICITY [Suspect]
     Active Substance: DULAGLUTIDE
     Indication: PRODUCT USED FOR UNKNOWN INDICATION
     Dosage: 1.5 MG, UNK
     Route: 065
  3. TOUJEO [Concomitant]
     Active Substance: INSULIN GLARGINE
  4. HUMALOG [Concomitant]
     Active Substance: INSULIN LISPRO
     Dosage: 200 MG, UNKNOWN
     Route: 065

REACTIONS (1)
  - Peripheral swelling [Not Recovered/Not Resolved]

NARRATIVE: CASE EVENT DATE: 20160624
